FAERS Safety Report 18558941 (Version 1)
Quarter: 2020Q4

REPORT INFORMATION
  Report Type: Spontaneous
  Country: US (occurrence: US)
  Receive Date: 20201125
  Receipt Date: 20201125
  Transmission Date: 20210114
  Serious: Yes (Other)
  Sender: FDA-Public Use
  Company Number: None

PATIENT
  Age: 73 Year
  Sex: Female

DRUGS (9)
  1. OMEPRAZOLE 20GM [Concomitant]
     Dates: start: 20200601
  2. PREDNISONE 2.5MG [Concomitant]
     Active Substance: PREDNISONE
     Dates: start: 20200601
  3. CALCIUM CITRATE [Concomitant]
     Active Substance: CALCIUM CITRATE
     Dates: start: 20200601
  4. TABRECTA [Suspect]
     Active Substance: CAPMATINIB
     Indication: LUNG NEOPLASM MALIGNANT
     Route: 048
     Dates: start: 20200905, end: 20201104
  5. HUMIRA 0.4MG [Concomitant]
     Dates: start: 20200601
  6. FUROSEMIDE 20MG [Concomitant]
     Active Substance: FUROSEMIDE
     Dates: start: 20200601
  7. NORCO [Concomitant]
     Active Substance: ACETAMINOPHEN\HYDROCODONE BITARTRATE
     Dates: start: 20200601
  8. TRAZODONE [Concomitant]
     Active Substance: TRAZODONE HYDROCHLORIDE
     Dates: start: 20200601
  9. FERROUS SULFATE 325MG [Concomitant]
     Active Substance: FERROUS SULFATE
     Dates: start: 20200601

REACTIONS (1)
  - Oedema [None]

NARRATIVE: CASE EVENT DATE: 20201104
